FAERS Safety Report 8969033 (Version 1)
Quarter: 2012Q4

REPORT INFORMATION
  Report Type: Spontaneous
  Country: US (occurrence: None)
  Receive Date: 20121214
  Receipt Date: 20121214
  Transmission Date: 20130627
  Serious: Yes (Hospitalization)
  Sender: FDA-Public Use
  Company Number: None

PATIENT
  Sex: Female
  Weight: 79.38 kg

DRUGS (3)
  1. VALACYCLOVIR [Suspect]
     Indication: OPPORTUNISTIC INFECTION
     Dosage: 2 per day po
     Route: 048
     Dates: start: 20121116, end: 20121212
  2. VALACYCLOVIR [Suspect]
     Indication: VIRAL INFECTION
     Dosage: 2 per day po
     Route: 048
     Dates: start: 20121116, end: 20121212
  3. VALACYCLOVIR [Suspect]
     Dosage: po
     Route: 048

REACTIONS (7)
  - Vomiting projectile [None]
  - Headache [None]
  - Pyrexia [None]
  - Diarrhoea [None]
  - Dehydration [None]
  - Bone pain [None]
  - Arthralgia [None]
